FAERS Safety Report 6588793-9 (Version None)
Quarter: 2010Q1

REPORT INFORMATION
  Report Type: 
  Country: None (occurrence: None)
  Receive Date: 20100212
  Receipt Date: 20100203
  Transmission Date: 20100710
  Serious: Yes (Death, Other)
  Sender: FDA-Public Use
  Company Number: 2009-03807

PATIENT
  Age: 74 Year
  Sex: Female

DRUGS (4)
  1. VELCADE [Suspect]
     Indication: MULTIPLE MYELOMA
     Dosage: 1.8 MG, INTRAVENOUS
     Route: 042
     Dates: start: 20080801, end: 20090101
  2. VELCADE [Suspect]
     Indication: MULTIPLE MYELOMA
     Dosage: 1.8 MG, INTRAVENOUS
     Route: 042
     Dates: start: 20090401, end: 20090701
  3. MELPHALAN HYDROCHLORIDE [Concomitant]
  4. THALIDOMIDE [Concomitant]

REACTIONS (6)
  - DISEASE RECURRENCE [None]
  - MULTIPLE MYELOMA [None]
  - POOR QUALITY DRUG ADMINISTERED [None]
  - PRODUCT COUNTERFEIT [None]
  - RESPIRATORY FAILURE [None]
  - THERAPEUTIC RESPONSE DECREASED [None]
